FAERS Safety Report 11945188 (Version 9)
Quarter: 2016Q2

REPORT INFORMATION
  Report Type: Spontaneous
  Country: PR (occurrence: PR)
  Receive Date: 20160125
  Receipt Date: 20160613
  Transmission Date: 20160815
  Serious: No
  Sender: FDA-Public Use
  Company Number: PR-PFIZER INC-2015297133

PATIENT
  Age: 61 Year
  Sex: Female
  Weight: 59.42 kg

DRUGS (2)
  1. SUTENT [Suspect]
     Active Substance: SUNITINIB MALATE
     Indication: METASTATIC RENAL CELL CARCINOMA
     Dosage: 37.5 MG, CYCLIC (28 DAYS ON/14 DAYS OFF)
     Dates: start: 20150914
  2. FISH OIL [Concomitant]
     Active Substance: FISH OIL
     Dosage: UNK

REACTIONS (14)
  - Eating disorder [Unknown]
  - Yellow skin [Unknown]
  - Blood cholesterol increased [Unknown]
  - Oral mucosal blistering [Unknown]
  - Oral pain [Unknown]
  - Fatigue [Recovering/Resolving]
  - Rash [Recovering/Resolving]
  - Asthenia [Recovering/Resolving]
  - Weight decreased [Recovered/Resolved]
  - Hypertension [Unknown]
  - Epistaxis [Unknown]
  - Dysgeusia [Recovering/Resolving]
  - Decreased appetite [Unknown]
  - Abdominal discomfort [Unknown]
